FAERS Safety Report 9257616 (Version 1)
Quarter: 2013Q1

REPORT INFORMATION
  Report Type: Spontaneous
  Country: US (occurrence: None)
  Receive Date: 20121212
  Receipt Date: 20121212
  Transmission Date: 20140127
  Serious: No
  Sender: FDA-Public Use
  Company Number: 1208USA011688

PATIENT
  Age: 59 Year
  Sex: Male

DRUGS (3)
  1. PEGINTRON (PEGINTERFERONALFA-2B) POWDER FOR INJECTION [Suspect]
     Route: 058
     Dates: start: 20120706, end: 20120907
  2. REBETOL (RIBAVIRIN) CAPSULE [Suspect]
     Route: 048
     Dates: start: 20120706, end: 20120907
  3. VICTRELIS (BOCEPREVIR) CAPSULE, 200MG [Suspect]
     Route: 048

REACTIONS (8)
  - Malaise [None]
  - Fatigue [None]
  - Dyspepsia [None]
  - Asthenia [None]
  - Gait disturbance [None]
  - Dizziness [None]
  - Decreased appetite [None]
  - Abasia [None]
